FAERS Safety Report 10180705 (Version 2)
Quarter: 2014Q2

REPORT INFORMATION
  Report Type: Spontaneous
  Country: US (occurrence: US)
  Receive Date: 20140519
  Receipt Date: 20140519
  Transmission Date: 20141212
  Serious: No
  Sender: FDA-Public Use
  Company Number: US-AMGEN INC.-USASP2014010497

PATIENT
  Age: 67 Year
  Sex: Female
  Weight: 43.08 kg

DRUGS (2)
  1. PROLIA [Suspect]
     Indication: OSTEOPOROSIS
     Dosage: UNK, 2
     Route: 065
     Dates: start: 20130418
  2. PROLIA [Suspect]

REACTIONS (4)
  - Infection [Unknown]
  - Candida infection [Unknown]
  - Herpes zoster [Unknown]
  - Urinary tract infection [Unknown]
